FAERS Safety Report 8775294 (Version 1)
Quarter: 2012Q4

REPORT INFORMATION
  Report Type: 
  Country: US (occurrence: US)
  Receive Date: 20120910
  Receipt Date: 20120910
  Transmission Date: 20130627
  Serious: No
  Sender: FDA-Public Use
  Company Number: US-PFIZER INC-2012221430

PATIENT
  Age: 90 Year
  Sex: Female
  Weight: 62.59 kg

DRUGS (4)
  1. LYRICA [Suspect]
     Indication: NEUROPATHY PERIPHERAL
     Dosage: 50 mg, 3x/day
     Dates: start: 20120824, end: 20120831
  2. LYRICA [Suspect]
     Dosage: 100 mg, 3x/day
     Dates: start: 20120831
  3. LYRICA [Suspect]
     Dosage: UNK
  4. LYRICA [Suspect]
     Dosage: 100 mg, 3x/day

REACTIONS (2)
  - Myalgia [Unknown]
  - Arthralgia [Unknown]
